FAERS Safety Report 6183622-X (Version None)
Quarter: 2009Q2

REPORT INFORMATION
  Report Type: 
  Country: None (occurrence: None)
  Receive Date: 20090508
  Receipt Date: 20090430
  Transmission Date: 20091009
  Serious: Yes (Other)
  Sender: FDA-Public Use
  Company Number: BR-JNJFOC-20090500114

PATIENT
  Sex: Male

DRUGS (6)
  1. ACETAMINOPHEN W/ CODEINE [Suspect]
     Indication: PAIN
     Route: 048
  2. DICLOFENAC [Concomitant]
     Indication: PAIN
     Route: 065
  3. SELOVASC [Concomitant]
     Dosage: STARTED 5 YEARS AGO
     Route: 065
  4. NOVATREX (AZITHROMYCIN) [Concomitant]
     Dosage: STARTED 5 YEARS AGO
     Route: 065
  5. NAPRIX [Concomitant]
     Dosage: STARTED 5 YEARS AGO
     Route: 065
  6. SEDILAX [Concomitant]
     Dosage: STARTED 5 YEARS AGO
     Route: 065

REACTIONS (1)
  - ASTHMA [None]
